FAERS Safety Report 5782436-X (Version None)
Quarter: 2008Q2

REPORT INFORMATION
  Report Type: 
  Country: None (occurrence: None)
  Receive Date: 20080623
  Receipt Date: 20080118
  Transmission Date: 20081010
  Serious: Yes (Other)
  Sender: FDA-Public Use
  Company Number: US-AMGEN-QUU261383

PATIENT
  Sex: Female

DRUGS (3)
  1. ARANESP [Suspect]
     Indication: ANAEMIA OF MALIGNANT DISEASE
     Dates: start: 20071205
  2. TOPOTECAN HYDROCHLORIDE [Concomitant]
     Dates: start: 20071203
  3. CISPLATIN [Concomitant]
     Dates: start: 20071203

REACTIONS (1)
  - THROMBOSIS [None]
